FAERS Safety Report 4463242-5 (Version None)
Quarter: 2004Q3

REPORT INFORMATION
  Report Type: 
  Country: None (occurrence: None)
  Receive Date: 20040930
  Receipt Date: 20040701
  Transmission Date: 20050211
  Serious: Yes (Hospitalization, Disabling, Other)
  Sender: FDA-Public Use
  Company Number: ZA-GLAXOSMITHKLINE-B0338426A

PATIENT
  Age: 34 Year
  Sex: Female

DRUGS (10)
  1. ZYBAN [Suspect]
     Dosage: 150MG TWICE PER DAY
     Route: 048
     Dates: start: 20031014, end: 20031118
  2. ZOLOFT [Suspect]
     Dosage: 50MG PER DAY
     Route: 048
     Dates: start: 19991101, end: 20031014
  3. NEURONTIN [Concomitant]
     Dosage: 300MG THREE TIMES PER DAY
     Route: 048
     Dates: start: 20031114, end: 20031117
  4. SEROQUEL [Concomitant]
     Dosage: 250MG PER DAY
     Route: 048
     Dates: start: 20031215, end: 20040205
  5. PREDNISOLONE [Concomitant]
  6. SLOW POTASSIUM [Concomitant]
     Dosage: 2U PER DAY
  7. CIPRAMIL [Concomitant]
     Dosage: 40MG PER DAY
  8. ZOLPIDEM TARTRATE [Concomitant]
     Dosage: 2U AT NIGHT
  9. CALTRATE [Concomitant]
     Dosage: 2U AT NIGHT
  10. IMURAN [Concomitant]
     Dosage: 25MG PER DAY

REACTIONS (17)
  - ABDOMINAL PAIN [None]
  - AGITATION [None]
  - ALANINE AMINOTRANSFERASE INCREASED [None]
  - ANOREXIA [None]
  - ANXIETY [None]
  - ASPARTATE AMINOTRANSFERASE INCREASED [None]
  - ASTHENIA [None]
  - AUTOIMMUNE HEPATITIS [None]
  - BLOOD ALKALINE PHOSPHATASE INCREASED [None]
  - C-REACTIVE PROTEIN INCREASED [None]
  - FATIGUE [None]
  - GAMMA-GLUTAMYLTRANSFERASE INCREASED [None]
  - LIVER FUNCTION TEST ABNORMAL [None]
  - MALAISE [None]
  - MYALGIA [None]
  - NAUSEA [None]
  - RED BLOOD CELL SEDIMENTATION RATE INCREASED [None]
